FAERS Safety Report 9451012 (Version 1)
Quarter: 2013Q3

REPORT INFORMATION
  Report Type: Report from Study
  Country: TH (occurrence: TH)
  Receive Date: 20130809
  Receipt Date: 20130809
  Transmission Date: 20140515
  Serious: Yes (Death)
  Sender: FDA-Public Use
  Company Number: TH-ROCHE-1208341

PATIENT
  Sex: Male
  Weight: 46.1 kg

DRUGS (5)
  1. RITUXIMAB [Suspect]
     Indication: DIFFUSE LARGE B-CELL LYMPHOMA
     Dosage: VOLUME OF LAST RITUXIMAB TAKEN: 500 ML, DOSE CONCENTRATION OF LAST RITUXIMAB TAKEN: 1.55 MG/ML, DATE
     Route: 042
     Dates: start: 20120821
  2. CYCLOPHOSPHAMIDE [Suspect]
     Indication: DIFFUSE LARGE B-CELL LYMPHOMA
     Dosage: DOSE OF LAST CYCLOPHOSPHAMIDE TAKEN: 1155MG, DATE OF MOST RECENT DOSE OF CYCLOPHOSPHAMIDE PRIOR TO A
     Route: 042
     Dates: start: 20120821
  3. DOXORUBICIN [Suspect]
     Indication: DIFFUSE LARGE B-CELL LYMPHOMA
     Dosage: DOSE OF LAST DOXORUBICIN TAKEN: 77 MG, DATE OF MOST RECENT DOSE OF DOXORUBICIN PRIOR TO AE ONSET: 29
     Route: 042
     Dates: start: 20120821
  4. VINCRISTINE [Suspect]
     Indication: DIFFUSE LARGE B-CELL LYMPHOMA
     Dosage: DOSE OF LAST VINCRISTINE TAKEN: 2 MG, DATE OF MOST RECENT DOSE OF VINCRISTINE PRIOR TO AE ONSET: 29/
     Route: 040
     Dates: start: 20120821
  5. PREDNISONE [Suspect]
     Indication: DIFFUSE LARGE B-CELL LYMPHOMA
     Dosage: DOSE OF LAST PREDNISONE TAKEN: 100 MG, DATE OF MOST RECENT DOSE OF PREDNISONE PRIOR TO AE ONSET: 02/
     Route: 065
     Dates: start: 20120821

REACTIONS (1)
  - Death [Fatal]
